FAERS Safety Report 21109905 (Version 1)
Quarter: 2022Q3

REPORT INFORMATION
  Report Type: Spontaneous
  Country: GB (occurrence: GB)
  Receive Date: 20220721
  Receipt Date: 20220721
  Transmission Date: 20221027
  Serious: Yes (Hospitalization, Disabling, Other)
  Sender: FDA-Public Use
  Company Number: None

PATIENT
  Sex: Female

DRUGS (3)
  1. FLUOXETINE [Suspect]
     Active Substance: FLUOXETINE HYDROCHLORIDE
     Indication: Depression
     Dates: start: 2021
  2. VORICONAZOLE [Suspect]
     Active Substance: VORICONAZOLE
     Indication: Antifungal prophylaxis
     Dates: start: 2022, end: 20220708
  3. NORETHINDRONE [Suspect]
     Active Substance: NORETHINDRONE
     Indication: Haemorrhage
     Dosage: 10MG TDS
     Dates: start: 20211201, end: 20220708

REACTIONS (1)
  - Intracranial pressure increased [Recovering/Resolving]

NARRATIVE: CASE EVENT DATE: 20220708
